FAERS Safety Report 5334604-9 (Version None)
Quarter: 2007Q2

REPORT INFORMATION
  Report Type: 
  Country: None (occurrence: None)
  Receive Date: 20070525
  Receipt Date: 20070522
  Transmission Date: 20071010
  Serious: Yes (Life-Threatening, Other)
  Sender: FDA-Public Use
  Company Number: DE-GENENTECH-241265

PATIENT
  Sex: Male
  Weight: 79 kg

DRUGS (2)
  1. MABTHERA [Suspect]
     Indication: CHRONIC LYMPHOCYTIC LEUKAEMIA
     Dosage: 375 UNK, UNK
     Route: 042
     Dates: start: 20070208
  2. BENDAMUSTINE [Suspect]
     Indication: CHRONIC LYMPHOCYTIC LEUKAEMIA
     Dosage: UNK, UNK
     Route: 042
     Dates: start: 20070208, end: 20070209

REACTIONS (2)
  - ALVEOLITIS [None]
  - PULMONARY FIBROSIS [None]
